FAERS Safety Report 8059580-X (Version None)
Quarter: 2012Q1

REPORT INFORMATION
  Report Type: 
  Country: None (occurrence: None)
  Receive Date: 20120113
  Receipt Date: 20120104
  Transmission Date: 20120608
  Serious: Yes (Death, Other)
  Sender: FDA-Public Use
  Company Number: AUR-APL-2012-00436

PATIENT
  Sex: Female

DRUGS (4)
  1. METHYLPREDNISOLONE [Suspect]
     Indication: IMMUNOSUPPRESSION
  2. SIROLIMUS (RAPAMUNE) [Suspect]
     Indication: IMMUNOSUPPRESSION
  3. CIPROFLOXACIN HCL [Suspect]
     Indication: ANTIBIOTIC PROPHYLAXIS
  4. FLUCONAZOLE [Suspect]
     Indication: ANTIBIOTIC PROPHYLAXIS

REACTIONS (3)
  - MICROANGIOPATHY [None]
  - ASPERGILLOSIS [None]
  - SEPSIS [None]
